FAERS Safety Report 5232403-X (Version None)
Quarter: 2007Q1

REPORT INFORMATION
  Report Type: 
  Country: None (occurrence: None)
  Receive Date: 20070205
  Receipt Date: 20070125
  Transmission Date: 20070707
  Serious: Yes (Death, Life-Threatening, Hospitalization)
  Sender: FDA-Public Use
  Company Number: 2007-00001

PATIENT
  Age: 62 Year
  Sex: Male

DRUGS (9)
  1. VELCADE [Suspect]
     Indication: MULTIPLE MYELOMA
  2. DOXORUBICIN HCL [Suspect]
     Indication: MULTIPLE MYELOMA
  3. DEXAMETHASONE [Suspect]
     Indication: MULTIPLE MYELOMA
  4. MELPHALAN(MELPHALAN) VIAL [Suspect]
     Indication: MULTIPLE MYELOMA
  5. ITRACONAZOLE [Concomitant]
  6. CEFTAZIDIME [Concomitant]
  7. PANTOPRAZOLE SODIUM [Concomitant]
  8. VALACYCLOVIR [Concomitant]
  9. OMVIL (CHLORPHENAMINE) [Concomitant]

REACTIONS (7)
  - ACUTE RESPIRATORY DISTRESS SYNDROME [None]
  - CARDIAC FAILURE [None]
  - COUGH [None]
  - LIFE SUPPORT [None]
  - PNEUMONIA [None]
  - RESPIRATORY FAILURE [None]
  - STEM CELL TRANSPLANT [None]
